FAERS Safety Report 7042816-1 (Version None)
Quarter: 2010Q4

REPORT INFORMATION
  Report Type: 
  Country: None (occurrence: None)
  Receive Date: 20101013
  Receipt Date: 20100120
  Transmission Date: 20110411
  Serious: No
  Sender: FDA-Public Use
  Company Number: US-ASTRAZENECA-2010SE02653

PATIENT
  Age: 57 Year
  Sex: Male
  Weight: 88.5 kg

DRUGS (3)
  1. SYMBICORT [Suspect]
     Indication: ASTHMA
     Dosage: 640 MG TWICE A DAY
     Route: 055
  2. CHOLESTEROL MEDICATION [Concomitant]
  3. BLOOD PRESSURE  MEDICATION [Concomitant]

REACTIONS (4)
  - AGITATION [None]
  - ANGER [None]
  - FEAR [None]
  - NERVOUSNESS [None]
